FAERS Safety Report 11347949 (Version 1)
Quarter: 2015Q3

REPORT INFORMATION
  Report Type: Spontaneous
  Country: US (occurrence: US)
  Receive Date: 20150803
  Receipt Date: 20150803
  Transmission Date: 20151125
  Serious: No
  Sender: FDA-Public Use
  Company Number: US-ELI_LILLY_AND_COMPANY-US201112005455

PATIENT
  Age: 20 Year
  Sex: Male

DRUGS (2)
  1. ZYPREXA [Suspect]
     Active Substance: OLANZAPINE
     Indication: MANIA
     Dosage: 7.5 MG, QD
     Route: 048
  2. ZYPREXA [Suspect]
     Active Substance: OLANZAPINE
     Dosage: 2.5 MG, QD
     Route: 048

REACTIONS (3)
  - Product preparation error [Unknown]
  - Mania [Unknown]
  - Intentional product misuse [Unknown]
